FAERS Safety Report 9788467 (Version 1)
Quarter: 2013Q4

REPORT INFORMATION
  Report Type: Spontaneous
  Country: NL (occurrence: NL)
  Receive Date: 20131230
  Receipt Date: 20131230
  Transmission Date: 20140711
  Serious: Yes (Other)
  Sender: FDA-Public Use
  Company Number: NL-PFIZER INC-2013371120

PATIENT
  Age: 31 Year
  Sex: Male
  Weight: 75 kg

DRUGS (1)
  1. DOXYCYCLINE HYCLATE [Suspect]
     Indication: LUNG INFECTION
     Dosage: 200 MG, 1X/DAY
     Dates: start: 2013, end: 2013

REACTIONS (5)
  - Depressed level of consciousness [Recovered/Resolved]
  - Pallor [Recovered/Resolved]
  - Pulse abnormal [Recovered/Resolved]
  - Restlessness [Recovered/Resolved]
  - Blood pressure decreased [Recovered/Resolved]
